FAERS Safety Report 14849034 (Version 1)
Quarter: 2018Q2

REPORT INFORMATION
  Report Type: Spontaneous
  Country: US (occurrence: US)
  Receive Date: 20180504
  Receipt Date: 20180504
  Transmission Date: 20180711
  Serious: Yes (Other)
  Sender: FDA-Public Use
  Company Number: US-JUBILANT CADISTA PHARMACEUTICALS-2018JUB00160

PATIENT

DRUGS (1)
  1. INDOMETHACIN. [Suspect]
     Active Substance: INDOMETHACIN
     Indication: PROLONGED PREGNANCY
     Dosage: UNK
     Route: 065

REACTIONS (5)
  - Right ventricular hypertrophy [Recovered/Resolved]
  - Tricuspid valve incompetence [Recovering/Resolving]
  - Ductus arteriosus premature closure [Recovering/Resolving]
  - Right atrial enlargement [Recovering/Resolving]
  - Foetal exposure during pregnancy [Recovered/Resolved]
